FAERS Safety Report 5429853-5 (Version None)
Quarter: 2007Q3

REPORT INFORMATION
  Report Type: 
  Country: None (occurrence: None)
  Receive Date: 20070829
  Receipt Date: 20070820
  Transmission Date: 20080115
  Serious: Yes (Hospitalization)
  Sender: FDA-Public Use
  Company Number: FR-SANOFI-SYNTHELABO-A02200702475

PATIENT
  Sex: Male

DRUGS (6)
  1. PRAXILENE [Concomitant]
     Indication: DRUG USE FOR UNKNOWN INDICATION
     Dosage: UNK
     Route: 048
  2. AMLODIPINE BESYLATE [Concomitant]
     Indication: DRUG USE FOR UNKNOWN INDICATION
     Dosage: UNK
     Route: 048
  3. ACETAMINOPHEN [Concomitant]
     Indication: DRUG USE FOR UNKNOWN INDICATION
     Dosage: UNK
     Route: 048
  4. BETASERC [Concomitant]
     Indication: DRUG USE FOR UNKNOWN INDICATION
     Dosage: UNK
     Route: 048
  5. ASPEGIC 325 [Concomitant]
     Indication: DRUG USE FOR UNKNOWN INDICATION
     Dosage: UNK
     Route: 048
  6. XATRAL [Suspect]
     Indication: PROSTATIC DISORDER
     Dosage: UNK
     Route: 048
     Dates: start: 20070701, end: 20070717

REACTIONS (4)
  - ERYTHEMA [None]
  - PRURITUS [None]
  - RASH PAPULAR [None]
  - TOXIC SKIN ERUPTION [None]
